FAERS Safety Report 9804295 (Version 1)
Quarter: 2014Q1

REPORT INFORMATION
  Report Type: Spontaneous
  Country: US (occurrence: US)
  Receive Date: 20140108
  Receipt Date: 20140108
  Transmission Date: 20141002
  Serious: Yes (Death)
  Sender: FDA-Public Use
  Company Number: US-BAYER-2014-003101

PATIENT
  Age: 50 Year
  Sex: Female

DRUGS (5)
  1. DEXTROMETHORPHAN (ROMILAR, XINLI) +/- GUAIFENESIN [Suspect]
     Route: 048
  2. DOXYLAMINE [Suspect]
     Route: 048
  3. DIPHENHYDRAMINE HYDROCHLORIDE [Suspect]
     Route: 048
  4. MORPHINE [Suspect]
     Route: 048
  5. PAROXETINE [Suspect]
     Route: 048

REACTIONS (1)
  - Drug abuse [Fatal]
